FAERS Safety Report 5749876-6 (Version None)
Quarter: 2008Q2

REPORT INFORMATION
  Report Type: 
  Country: None (occurrence: None)
  Receive Date: 20080527
  Receipt Date: 20080515
  Transmission Date: 20081010
  Serious: Yes (Congenital Anomaly)
  Sender: FDA-Public Use
  Company Number: FR-ROCHE-564866

PATIENT
  Age: 34 Year
  Sex: Female

DRUGS (8)
  1. VALIUM [Suspect]
     Indication: EPILEPSY
     Route: 065
  2. ZYPREXA [Suspect]
     Dosage: 1 DOSE DAILY
     Route: 065
  3. DI-HYDAN [Suspect]
     Indication: DRUG USE FOR UNKNOWN INDICATION
     Dosage: 3 DOSES DAILY
     Route: 065
  4. ALEPSAL [Suspect]
     Indication: EPILEPSY
     Route: 065
  5. ALEPSAL [Suspect]
     Route: 065
  6. ALEPSAL [Suspect]
     Route: 065
  7. URBANYL [Suspect]
     Indication: EPILEPSY
     Route: 065
  8. LAMICTAL [Suspect]
     Indication: EPILEPSY
     Dosage: 1 DOSE DAILY
     Route: 065

REACTIONS (1)
  - CONGENITAL CENTRAL NERVOUS SYSTEM ANOMALY [None]
